FAERS Safety Report 9686368 (Version 2)
Quarter: 2013Q4

REPORT INFORMATION
  Report Type: Report from Study
  Country: US (occurrence: US)
  Receive Date: 20131113
  Receipt Date: 20131226
  Transmission Date: 20140711
  Serious: Yes (Hospitalization)
  Sender: FDA-Public Use
  Company Number: US-ACTELION-A-US2013-90912

PATIENT
  Age: 51 Year
  Sex: Female

DRUGS (1)
  1. TRACLEER [Suspect]
     Indication: PULMONARY ARTERIAL HYPERTENSION
     Dosage: UNK
     Route: 048
     Dates: start: 201109

REACTIONS (9)
  - Vision blurred [Unknown]
  - Dry skin [Unknown]
  - Dyspnoea [Recovering/Resolving]
  - Chest pain [Unknown]
  - Oedema [Unknown]
  - Weight increased [Unknown]
  - Rash [Unknown]
  - Hypotension [Unknown]
  - Heart rate increased [Unknown]
